FAERS Safety Report 8805979 (Version 1)
Quarter: 2012Q4

REPORT INFORMATION
  Report Type: Spontaneous
  Country: GB (occurrence: None)
  Receive Date: 20120918
  Receipt Date: 20120918
  Transmission Date: 20130627
  Serious: Yes (Disabling)
  Sender: FDA-Public Use
  Company Number: ADR-2012-01704

PATIENT

DRUGS (1)
  1. BACLOFEN [Suspect]

REACTIONS (1)
  - Scoliosis [None]
